FAERS Safety Report 10142911 (Version 4)
Quarter: 2014Q2

REPORT INFORMATION
  Report Type: Spontaneous
  Country: MD (occurrence: MD)
  Receive Date: 20140430
  Receipt Date: 20140527
  Transmission Date: 20141212
  Serious: Yes (Other)
  Sender: FDA-Public Use
  Company Number: MD-BAYER-2014-057526

PATIENT
  Age: 35 Year
  Sex: Female

DRUGS (1)
  1. AVELOX 400 MG TABLETS (FILM COATED) [Suspect]
     Indication: URINARY TRACT INFECTION
     Dosage: 400 MG, QD
     Dates: start: 20140307, end: 20140320

REACTIONS (2)
  - Foetal growth restriction [None]
  - Maternal exposure before pregnancy [Recovered/Resolved]
